FAERS Safety Report 15822068 (Version 1)
Quarter: 2019Q1

REPORT INFORMATION
  Report Type: Spontaneous
  Country: US (occurrence: US)
  Receive Date: 20190114
  Receipt Date: 20190114
  Transmission Date: 20190417
  Serious: No
  Sender: FDA-Public Use
  Company Number: US-AMGEN INC.-USASP2019004466

PATIENT
  Age: 57 Year
  Sex: Female

DRUGS (4)
  1. ZOLOFT [Concomitant]
     Active Substance: SERTRALINE HYDROCHLORIDE
     Dosage: UNK
  2. AIMOVIG [Suspect]
     Active Substance: ERENUMAB-AOOE
     Indication: MIGRAINE PROPHYLAXIS
     Dosage: 70 MG, QMO
     Route: 065
     Dates: start: 20180109
  3. ELAVIL [Concomitant]
     Active Substance: AMITRIPTYLINE HYDROCHLORIDE
     Dosage: UNK
  4. RIZATRIPTAN. [Concomitant]
     Active Substance: RIZATRIPTAN
     Dosage: UNK

REACTIONS (3)
  - Wrong technique in product usage process [Unknown]
  - Device issue [Unknown]
  - Injection site erythema [Recovered/Resolved]

NARRATIVE: CASE EVENT DATE: 20190109
